FAERS Safety Report 15253945 (Version 1)
Quarter: 2018Q4

REPORT INFORMATION
  Report Type: Spontaneous
  Country: US (occurrence: US)
  Receive Date: 20180808
  Receipt Date: 20180808
  Transmission Date: 20190204
  Serious: Yes (Other)
  Sender: FDA-Public Use
  Company Number: US-HIKMA PHARMACEUTICALS USA INC.-US-H14001-18-06247

PATIENT
  Age: 22 Year
  Sex: Female

DRUGS (23)
  1. LORAZEPAM. [Suspect]
     Active Substance: LORAZEPAM
     Route: 048
  2. LORAZEPAM. [Suspect]
     Active Substance: LORAZEPAM
     Route: 048
  3. LORAZEPAM. [Suspect]
     Active Substance: LORAZEPAM
     Route: 048
  4. LORAZEPAM. [Suspect]
     Active Substance: LORAZEPAM
     Route: 048
  5. HALOPERIDOL. [Suspect]
     Active Substance: HALOPERIDOL
     Indication: AGITATION
     Dosage: 100 MCG/H
     Route: 042
  6. HALOPERIDOL. [Suspect]
     Active Substance: HALOPERIDOL
     Route: 048
  7. FENTANYL. [Suspect]
     Active Substance: FENTANYL
     Indication: SEDATION
     Dosage: 100 MCG/H
     Route: 065
  8. HALOPERIDOL. [Suspect]
     Active Substance: HALOPERIDOL
     Route: 042
  9. LORAZEPAM. [Suspect]
     Active Substance: LORAZEPAM
     Indication: SEDATION
     Dosage: 100 MCG/H
     Route: 042
  10. HALOPERIDOL. [Suspect]
     Active Substance: HALOPERIDOL
     Route: 048
  11. DIPHENHYDRAMINE. [Suspect]
     Active Substance: DIPHENHYDRAMINE
     Indication: DYSTONIA
     Dosage: 100 MCG/H
     Route: 042
  12. VANCOMYCIN [Concomitant]
     Active Substance: VANCOMYCIN
     Indication: PRODUCT USED FOR UNKNOWN INDICATION
     Dosage: 100 MCG/H
     Route: 065
  13. LORAZEPAM. [Suspect]
     Active Substance: LORAZEPAM
     Route: 048
  14. LORAZEPAM. [Suspect]
     Active Substance: LORAZEPAM
     Indication: SEDATION
     Dosage: 100 MCG/H
     Route: 048
  15. LORAZEPAM. [Suspect]
     Active Substance: LORAZEPAM
     Route: 048
  16. LORAZEPAM. [Suspect]
     Active Substance: LORAZEPAM
     Route: 048
  17. LORAZEPAM. [Suspect]
     Active Substance: LORAZEPAM
     Route: 048
  18. LORAZEPAM. [Suspect]
     Active Substance: LORAZEPAM
     Dosage: 100 MCG/H
     Route: 042
  19. LORAZEPAM. [Suspect]
     Active Substance: LORAZEPAM
     Route: 042
  20. LORAZEPAM. [Suspect]
     Active Substance: LORAZEPAM
     Route: 048
  21. LORAZEPAM. [Suspect]
     Active Substance: LORAZEPAM
     Route: 048
  22. HALOPERIDOL. [Suspect]
     Active Substance: HALOPERIDOL
     Indication: DELIRIUM
     Dosage: 100 MCG/H
     Route: 048
  23. FENTANYL. [Suspect]
     Active Substance: FENTANYL
     Dosage: 200 MCG/H
     Route: 065

REACTIONS (1)
  - Neuroleptic malignant syndrome [Recovering/Resolving]
